FAERS Safety Report 19656943 (Version 2)
Quarter: 2021Q3

REPORT INFORMATION
  Report Type: Spontaneous
  Country: JP (occurrence: JP)
  Receive Date: 20210804
  Receipt Date: 20210922
  Transmission Date: 20211014
  Serious: Yes (Other)
  Sender: FDA-Public Use
  Company Number: JP-ELI_LILLY_AND_COMPANY-JP202108000255AA

PATIENT
  Sex: Male
  Weight: 58 kg

DRUGS (8)
  1. MIYA?BM [Concomitant]
     Active Substance: CLOSTRIDIUM BUTYRICUM SPORES STRAIN M-55
  2. AMLODIPINE [Concomitant]
     Active Substance: AMLODIPINE BESYLATE
  3. AZILVA [Concomitant]
     Active Substance: AZILSARTAN KAMEDOXOMIL
  4. VOLTAREN [Concomitant]
     Active Substance: DICLOFENAC SODIUM
     Dosage: 75 MG
  5. TAKECAB [Concomitant]
     Active Substance: VONOPRAZAN FUMARATE
  6. METHYCOBAL [Concomitant]
     Active Substance: METHYLCOBALAMIN
  7. LOXONIN [Concomitant]
     Active Substance: LOXOPROFEN SODIUM
  8. TALTZ [Suspect]
     Active Substance: IXEKIZUMAB
     Indication: ANKYLOSING SPONDYLITIS
     Dosage: 80 MG
     Route: 058
     Dates: start: 20200218, end: 20200218

REACTIONS (1)
  - Uveitis [Recovered/Resolved with Sequelae]
